FAERS Safety Report 14498662 (Version 1)
Quarter: 2018Q1

REPORT INFORMATION
  Report Type: Spontaneous
  Country: SK (occurrence: SK)
  Receive Date: 20180207
  Receipt Date: 20180207
  Transmission Date: 20180509
  Serious: Yes (Hospitalization)
  Sender: FDA-Public Use
  Company Number: SK-DSJP-DSE-2018-104304

PATIENT

DRUGS (4)
  1. FURON                              /00032601/ [Concomitant]
     Active Substance: FUROSEMIDE
     Indication: PRODUCT USED FOR UNKNOWN INDICATION
     Route: 048
  2. LIXIANA [Suspect]
     Active Substance: EDOXABAN TOSYLATE
     Indication: THROMBOSIS PROPHYLAXIS
     Dosage: 60 MG, QD
     Route: 048
     Dates: start: 20170616, end: 20171004
  3. NOLIPREL FORTE [Concomitant]
     Indication: PRODUCT USED FOR UNKNOWN INDICATION
     Dosage: 1 DF, QD
     Route: 048
  4. LUSOPRESS [Concomitant]
     Active Substance: NITRENDIPINE
     Indication: PRODUCT USED FOR UNKNOWN INDICATION
     Dosage: 20 MG, BID
     Route: 048

REACTIONS (1)
  - Large intestinal ulcer [Recovered/Resolved]

NARRATIVE: CASE EVENT DATE: 20171004
